FAERS Safety Report 6161369-3 (Version None)
Quarter: 2009Q2

REPORT INFORMATION
  Report Type: 
  Country: None (occurrence: None)
  Receive Date: 20090421
  Receipt Date: 20090408
  Transmission Date: 20091009
  Serious: No
  Sender: FDA-Public Use
  Company Number: US-B.I. PHARMACEUTICALS,INC./RIDGEFIELD-2009-BP-04525BP

PATIENT
  Sex: Male

DRUGS (4)
  1. SPIRIVA [Suspect]
     Indication: IDIOPATHIC PULMONARY FIBROSIS
     Dates: start: 20090201
  2. SPIRIVA [Suspect]
     Indication: DYSPNOEA
  3. SPIRIVA [Suspect]
     Indication: CHRONIC OBSTRUCTIVE PULMONARY DISEASE
  4. OXYGEN [Concomitant]

REACTIONS (7)
  - ANAL PRURITUS [None]
  - BACK DISORDER [None]
  - COUGH [None]
  - DERMATITIS [None]
  - INCREASED UPPER AIRWAY SECRETION [None]
  - PAIN [None]
  - RASH GENERALISED [None]
